FAERS Safety Report 5206735-5 (Version None)
Quarter: 2007Q1

REPORT INFORMATION
  Report Type: 
  Country: None (occurrence: None)
  Receive Date: 20070109
  Receipt Date: 20061220
  Transmission Date: 20070707
  Serious: Yes (Other)
  Sender: FDA-Public Use
  Company Number: ENT 2006-0181

PATIENT
  Age: 79 Year

DRUGS (1)
  1. COMTAN [Suspect]
     Dosage: SEE IMAGE
     Route: 048
     Dates: start: 20051115

REACTIONS (2)
  - FEELING ABNORMAL [None]
  - ILLUSION [None]
